FAERS Safety Report 8830269 (Version 1)
Quarter: 2012Q4

REPORT INFORMATION
  Report Type: 
  Country: JP (occurrence: JP)
  Receive Date: 20121009
  Receipt Date: 20121009
  Transmission Date: 20130627
  Serious: No
  Sender: FDA-Public Use
  Company Number: JP-JNJFOC-20121001189

PATIENT

DRUGS (2)
  1. DUROTEP [Suspect]
     Indication: CANCER PAIN
     Dosage: 4 patches of fentanyl (matrix patch) 50 mcg/hr at a time
     Route: 062
  2. DUROTEP [Suspect]
     Indication: CANCER PAIN
     Dosage: 4 patches of fentanyl (matrix patch) 50 mcg/hr at a time
     Route: 062

REACTIONS (1)
  - Drug prescribing error [Unknown]
